FAERS Safety Report 6975343-8 (Version None)
Quarter: 2010Q3

REPORT INFORMATION
  Report Type: 
  Country: None (occurrence: None)
  Receive Date: 20100910
  Receipt Date: 20090316
  Transmission Date: 20110219
  Serious: No
  Sender: FDA-Public Use
  Company Number: US-WYE-H08615409

PATIENT
  Sex: Female
  Weight: 64.92 kg

DRUGS (10)
  1. PRISTIQ [Suspect]
     Indication: HOT FLUSH
     Route: 048
     Dates: start: 20090313
  2. LEVOTHYROXINE SODIUM [Concomitant]
  3. LIPITOR [Concomitant]
  4. MOMETASONE FUROATE [Concomitant]
  5. LANSOPRAZOLE [Concomitant]
  6. TRIMETHOPRIM [Concomitant]
  7. FOSAMAX [Concomitant]
  8. ASMANEX TWISTHALER [Concomitant]
  9. SINGULAIR [Concomitant]
  10. LORATADINE AND PSEUDOEPHEDRINE SULFATE [Concomitant]

REACTIONS (2)
  - DIZZINESS [None]
  - NAUSEA [None]
